FAERS Safety Report 19165257 (Version 1)
Quarter: 2021Q2

REPORT INFORMATION
  Report Type: Spontaneous
  Country: US (occurrence: US)
  Receive Date: 20210421
  Receipt Date: 20210421
  Transmission Date: 20210717
  Serious: No
  Sender: FDA-Public Use
  Company Number: US-BAYER-2021-128440

PATIENT
  Age: 79 Year
  Sex: Male

DRUGS (1)
  1. MIRALAX [Suspect]
     Active Substance: POLYETHYLENE GLYCOL 3350
     Indication: GASTROINTESTINAL DISORDER
     Dosage: CAPFUL UP TO THE WHITE LINE DOSE
     Route: 048

REACTIONS (4)
  - Nausea [Unknown]
  - Product taste abnormal [None]
  - Product odour abnormal [None]
  - Illness [Unknown]
